FAERS Safety Report 23743572 (Version 2)
Quarter: 2024Q2

REPORT INFORMATION
  Report Type: Spontaneous
  Country: FR (occurrence: FR)
  Receive Date: 20240415
  Receipt Date: 20240422
  Transmission Date: 20240716
  Serious: Yes (Hospitalization, Other)
  Sender: FDA-Public Use
  Company Number: None

PATIENT
  Age: 67 Year
  Sex: Male
  Weight: 81.6 kg

DRUGS (3)
  1. DOXORUBICIN [Suspect]
     Active Substance: DOXORUBICIN
     Indication: Malignant fibrous histiocytoma
     Dosage: 40 MG, 12X TOTAL, 4 COURSES D1, D2, D3
     Route: 042
     Dates: start: 20230404, end: 20230608
  2. IFOSFAMIDE [Suspect]
     Active Substance: IFOSFAMIDE
     Indication: Malignant fibrous histiocytoma
     Dosage: 4950 MG, 12X TOTAL, 4 COURSES D1, D2, D3
     Route: 042
     Dates: start: 20230404, end: 20230608
  3. INNOHEP [Suspect]
     Active Substance: TINZAPARIN SODIUM
     Indication: Cardiac ventricular thrombosis
     Dosage: 13000 IU, EVERY 1XDAY, START DATE: JUN-2023
     Route: 058

REACTIONS (1)
  - Acute kidney injury [Not Recovered/Not Resolved]
